FAERS Safety Report 9841847 (Version 1)
Quarter: 2013Q4

REPORT INFORMATION
  Report Type: Spontaneous
  Country: US (occurrence: None)
  Receive Date: 20131219
  Receipt Date: 20131219
  Transmission Date: 20140711
  Serious: Yes (Death)
  Sender: FDA-Public Use
  Company Number: 163-20785-13020118

PATIENT
  Age: 80 Year
  Sex: Female
  Weight: 79.83 kg

DRUGS (13)
  1. THALOMID [Suspect]
     Indication: PLASMA CELL MYELOMA
     Dosage: 1 IN 1 D
     Route: 048
     Dates: start: 201209
  2. ACYCLOVIR [Concomitant]
  3. AMLODIPINE [Concomitant]
  4. COUMADIN [Concomitant]
  5. GLIPIZIDE [Concomitant]
  6. LIPITOR [Concomitant]
  7. VICODIN [Concomitant]
  8. TUMS [Concomitant]
  9. METHADONE HCL [Concomitant]
  10. LASIX [Concomitant]
  11. DUONES [Concomitant]
  12. DEXAMETHASONE [Concomitant]
  13. BACTRIM DS [Concomitant]

REACTIONS (1)
  - Death [None]
